FAERS Safety Report 25191618 (Version 1)
Quarter: 2025Q2

REPORT INFORMATION
  Report Type: Spontaneous
  Country: US (occurrence: None)
  Receive Date: 20250411
  Receipt Date: 20250411
  Transmission Date: 20250717
  Serious: No
  Sender: FDA-CTU
  Company Number: None

PATIENT
  Age: 46 Year
  Sex: Male
  Weight: 113.4 kg

DRUGS (1)
  1. EBGLYSS [Suspect]
     Active Substance: LEBRIKIZUMAB-LBKZ
     Route: 058

REACTIONS (2)
  - Eye irritation [None]
  - Eye pruritus [None]

NARRATIVE: CASE EVENT DATE: 20250222
